FAERS Safety Report 8279255-1 (Version None)
Quarter: 2012Q2

REPORT INFORMATION
  Report Type: 
  Country: None (occurrence: None)
  Receive Date: 20120412
  Receipt Date: 20110714
  Transmission Date: 20120825
  Serious: No
  Sender: FDA-Public Use
  Company Number: US-ASTRAZENECA-2011SE42383

PATIENT
  Age: 35 Year
  Weight: 68 kg

DRUGS (3)
  1. REQUIP [Concomitant]
  2. NEXIUM [Suspect]
     Indication: GASTROOESOPHAGEAL REFLUX DISEASE
     Route: 048
     Dates: start: 20110628, end: 20110707
  3. TRAZODONE HCL [Concomitant]

REACTIONS (4)
  - CHEST PAIN [None]
  - PANIC ATTACK [None]
  - DYSPEPSIA [None]
  - PALPITATIONS [None]
